FAERS Safety Report 20358363 (Version 1)
Quarter: 2022Q1

REPORT INFORMATION
  Report Type: Spontaneous
  Country: US (occurrence: US)
  Receive Date: 20220120
  Receipt Date: 20220120
  Transmission Date: 20220424
  Serious: No
  Sender: FDA-Public Use
  Company Number: US-SEAGEN-2021SGN05593

PATIENT

DRUGS (3)
  1. TUKYSA [Suspect]
     Active Substance: TUCATINIB
     Indication: Product used for unknown indication
  2. HERCEPTIN [Suspect]
     Active Substance: TRASTUZUMAB
     Indication: Product used for unknown indication
  3. XELODA [Suspect]
     Active Substance: CAPECITABINE
     Indication: Product used for unknown indication

REACTIONS (1)
  - Diarrhoea [Unknown]
